FAERS Safety Report 9375729 (Version 1)
Quarter: 2013Q2

REPORT INFORMATION
  Report Type: Report from Study
  Country: US (occurrence: US)
  Receive Date: 20130628
  Receipt Date: 20130628
  Transmission Date: 20140414
  Serious: Yes (Other)
  Sender: FDA-Public Use
  Company Number: US-US-EMD SERONO, INC.-7219592

PATIENT
  Age: 51 Year
  Sex: Male

DRUGS (2)
  1. EGRIFTA [Suspect]
     Indication: LIPODYSTROPHY ACQUIRED
     Route: 058
     Dates: start: 20120115, end: 20130606
  2. EGRIFTA [Suspect]
     Route: 058

REACTIONS (1)
  - Cellulitis [Recovering/Resolving]
